FAERS Safety Report 7995657-2 (Version None)
Quarter: 2011Q4

REPORT INFORMATION
  Report Type: 
  Country: None (occurrence: None)
  Receive Date: 20111220
  Receipt Date: 20111215
  Transmission Date: 20120403
  Serious: Yes (Life-Threatening)
  Sender: FDA-Public Use
  Company Number: FR-EISAI INC-E3810-05166-SPO-FR

PATIENT
  Age: 80 Year
  Sex: Female

DRUGS (7)
  1. GALANTAMINE HYDROBROMIDE [Suspect]
     Route: 048
     Dates: start: 20110718
  2. ACTONEL [Concomitant]
  3. ACETAMINOPHEN [Concomitant]
  4. GALANTAMINE HYDROBROMIDE [Suspect]
     Route: 048
     Dates: start: 20110601, end: 20110718
  5. CERIS [Concomitant]
  6. RABEPRAZOLE SODIUM [Suspect]
     Dosage: UNKNOWN
     Route: 048
  7. STRUCTUM [Concomitant]

REACTIONS (1)
  - ATRIAL FIBRILLATION [None]
